FAERS Safety Report 9684309 (Version 1)
Quarter: 2013Q1

REPORT INFORMATION
  Report Type: Spontaneous
  Country: US (occurrence: None)
  Receive Date: 20120605
  Receipt Date: 20120605
  Transmission Date: 20140127
  Serious: Yes (Death, Hospitalization, Other)
  Sender: FDA-Public Use
  Company Number: 2012SP004951

PATIENT
  Age: 71 Year
  Sex: Male
  Weight: 102.7 kg

DRUGS (24)
  1. INTEGRILIN [Suspect]
     Indication: MYOCARDIAL INFARCTION
     Route: 042
     Dates: start: 20120113, end: 20120113
  2. HEPARIN [Concomitant]
  3. CALCIUM GLUCONATE [Concomitant]
  4. CISATRACURIUM [Concomitant]
  5. FENTANYL [Concomitant]
  6. FUROSEMIDE [Concomitant]
  7. MAGNESIUM SULFATE [Concomitant]
  8. NOREPINEPHRINE [Concomitant]
  9. PROPOFOL [Concomitant]
  10. VASOPRESSIN [Concomitant]
  11. HYDROCORTISONE [Concomitant]
  12. INSULIN [Concomitant]
  13. IPRATROPIUM [Concomitant]
  14. METHYLPREDNIS [Concomitant]
  15. MILRINONE [Concomitant]
  16. AMIODARONE [Concomitant]
  17. ADENOSINE [Concomitant]
  18. ALBUMIN [Concomitant]
  19. DIURIL [Concomitant]
  20. DOBUTAMINE [Concomitant]
  21. ESMOLOL [Concomitant]
  22. ZOSYN [Concomitant]
  23. FLOLAN /00652701/ [Concomitant]
  24. ALBUTEROL [Concomitant]

REACTIONS (7)
  - Haemorrhage [None]
  - Thrombocytopenia [None]
  - Pulmonary alveolar haemorrhage [None]
  - Cardiogenic shock [None]
  - Bandaemia [None]
  - Ventricular tachycardia [None]
  - Haematuria [None]
